FAERS Safety Report 14155122 (Version 1)
Quarter: 2017Q4

REPORT INFORMATION
  Report Type: Spontaneous
  Country: US (occurrence: US)
  Receive Date: 20171103
  Receipt Date: 20171103
  Transmission Date: 20180321
  Serious: Yes (Hospitalization)
  Sender: FDA-Public Use
  Company Number: US-BEH-2017084736

PATIENT
  Sex: Female
  Weight: 78.5 kg

DRUGS (28)
  1. LIDOCAINE/PRILOCAINE [Concomitant]
     Active Substance: LIDOCAINE\PRILOCAINE
  2. LMX                                /00033401/ [Concomitant]
  3. EXELON [Concomitant]
     Active Substance: RIVASTIGMINE TARTRATE
  4. NORCO [Concomitant]
     Active Substance: ACETAMINOPHEN\HYDROCODONE BITARTRATE
  5. DIPHENHYDRAMINE. [Concomitant]
     Active Substance: DIPHENHYDRAMINE
  6. HIZENTRA [Suspect]
     Active Substance: HUMAN IMMUNOGLOBULIN G
     Dosage: UNK
     Route: 058
  7. PREDNISONE. [Concomitant]
     Active Substance: PREDNISONE
  8. DULERA [Concomitant]
     Active Substance: FORMOTEROL FUMARATE DIHYDRATE\MOMETASONE FUROATE
  9. EPINEPHRINE. [Concomitant]
     Active Substance: EPINEPHRINE
  10. SAVELLA [Concomitant]
     Active Substance: MILNACIPRAN HYDROCHLORIDE
  11. ZOCOR [Concomitant]
     Active Substance: SIMVASTATIN
  12. SPIRIVA [Concomitant]
     Active Substance: TIOTROPIUM BROMIDE MONOHYDRATE
  13. LEXAPRO [Concomitant]
     Active Substance: ESCITALOPRAM OXALATE
  14. DIPHENHYDRAMINE. [Concomitant]
     Active Substance: DIPHENHYDRAMINE
  15. LASIX [Concomitant]
     Active Substance: FUROSEMIDE
  16. POTASSIUM [Concomitant]
     Active Substance: POTASSIUM
  17. COREG [Concomitant]
     Active Substance: CARVEDILOL
  18. XANAX [Concomitant]
     Active Substance: ALPRAZOLAM
  19. PLAVIX [Concomitant]
     Active Substance: CLOPIDOGREL BISULFATE
  20. ALBUTEROL                          /00139501/ [Concomitant]
     Active Substance: ALBUTEROL
  21. GLUCOPHAGE [Concomitant]
     Active Substance: METFORMIN HYDROCHLORIDE
  22. IBUPROFEN. [Concomitant]
     Active Substance: IBUPROFEN
  23. HIZENTRA [Suspect]
     Active Substance: HUMAN IMMUNOGLOBULIN G
     Indication: IMMUNODEFICIENCY COMMON VARIABLE
     Dosage: 20 G, UNK
     Route: 058
     Dates: start: 20101122
  24. PROMETHAZINE [Concomitant]
     Active Substance: PROMETHAZINE\PROMETHAZINE HYDROCHLORIDE
  25. TRAZODONE [Concomitant]
     Active Substance: TRAZODONE HYDROCHLORIDE
  26. SINGULAIR [Concomitant]
     Active Substance: MONTELUKAST SODIUM
  27. SOMA [Concomitant]
     Active Substance: CARISOPRODOL
  28. PROAIR HFA [Concomitant]
     Active Substance: ALBUTEROL SULFATE

REACTIONS (1)
  - Myocardial infarction [Unknown]
